FAERS Safety Report 5878591-3 (Version None)
Quarter: 2008Q3

REPORT INFORMATION
  Report Type: 
  Country: None (occurrence: None)
  Receive Date: 20080909
  Receipt Date: 20080825
  Transmission Date: 20090109
  Serious: Yes (Hospitalization, Other)
  Sender: FDA-Public Use
  Company Number: 2008001950

PATIENT
  Age: 61 Year
  Sex: Female

DRUGS (4)
  1. TARCEVA [Suspect]
     Indication: LUNG ADENOCARCINOMA
     Dosage: (150 MG, QD), ORAL; (300 MG, QD), ORAL
     Route: 048
  2. METHYLPREDNISOLONE 16MG TAB [Suspect]
     Indication: LUNG ADENOCARCINOMA
     Dosage: (120 MG), INTRAVENOUS
     Route: 042
  3. STEROID NOS [Suspect]
     Indication: LUNG ADENOCARCINOMA
  4. PREDNISONE [Suspect]
     Indication: LUNG ADENOCARCINOMA
     Dosage: ORAL
     Route: 048

REACTIONS (6)
  - CONFUSIONAL STATE [None]
  - CSF TEST ABNORMAL [None]
  - DISEASE PROGRESSION [None]
  - NO THERAPEUTIC RESPONSE [None]
  - RASH [None]
  - RECURRENT CANCER [None]
